FAERS Safety Report 7421322-6 (Version None)
Quarter: 2011Q2

REPORT INFORMATION
  Report Type: 
  Country: None (occurrence: None)
  Receive Date: 20110418
  Receipt Date: 20110407
  Transmission Date: 20111010
  Serious: Yes (Disabling, Other)
  Sender: FDA-Public Use
  Company Number: US-ASTRAZENECA-2011SE19752

PATIENT
  Sex: Male

DRUGS (1)
  1. SYMBICORT [Suspect]
     Indication: ASTHMA
     Dosage: TOTAL DAILY DOSAGE AND FREQUENCY: UNKNOWN.
     Route: 055
     Dates: start: 20110101

REACTIONS (6)
  - INJURY [None]
  - DEPRESSED MOOD [None]
  - ROAD TRAFFIC ACCIDENT [None]
  - INCORRECT DOSE ADMINISTERED [None]
  - TOTAL LUNG CAPACITY DECREASED [None]
  - ADVERSE EVENT [None]
